FAERS Safety Report 8902570 (Version 1)
Quarter: 2012Q4

REPORT INFORMATION
  Report Type: 
  Country: US (occurrence: US)
  Receive Date: 20121112
  Receipt Date: 20121112
  Transmission Date: 20130627
  Serious: Yes (Death, Other)
  Sender: FDA-Public Use
  Company Number: PHHY2012US103737

PATIENT
  Age: 19 Year

DRUGS (2)
  1. DOCETAXEL [Suspect]
     Indication: RHABDOMYOSARCOMA
     Dosage: 75 mg/m2, UNK
  2. GEMCITABINE [Suspect]
     Indication: RHABDOMYOSARCOMA
     Dosage: 675 mg/m2, UNK

REACTIONS (3)
  - Malignant neoplasm progression [Fatal]
  - Hypercalcaemia [Unknown]
  - Blood creatinine increased [Unknown]
